FAERS Safety Report 18479160 (Version 3)
Quarter: 2021Q2

REPORT INFORMATION
  Report Type: Spontaneous
  Country: JP (occurrence: JP)
  Receive Date: 20201109
  Receipt Date: 20210504
  Transmission Date: 20210717
  Serious: Yes (Disabling, Other)
  Sender: FDA-Public Use
  Company Number: NVSJ2020JP008037

PATIENT
  Age: 66 Year
  Sex: Male

DRUGS (3)
  1. BEOVU [Suspect]
     Active Substance: BROLUCIZUMAB-DBLL
     Indication: AGE-RELATED MACULAR DEGENERATION
     Dosage: 6 MG
     Route: 031
     Dates: start: 20200624, end: 20200624
  2. RINDERON [BETAMETHASONE] [Suspect]
     Active Substance: BETAMETHASONE
     Indication: VITREOUS OPACITIES
  3. RINDERON [BETAMETHASONE] [Suspect]
     Active Substance: BETAMETHASONE
     Indication: ANTERIOR CHAMBER INFLAMMATION
     Dosage: 0.1 %, QID
     Route: 047
     Dates: start: 20200727, end: 20201022

REACTIONS (7)
  - Intraocular pressure increased [Unknown]
  - Vision blurred [Unknown]
  - Anterior chamber fibrin [Unknown]
  - Vitreous opacities [Recovered/Resolved]
  - Corneal opacity [Unknown]
  - Visual acuity reduced [Not Recovered/Not Resolved]
  - Anterior chamber inflammation [Recovered/Resolved]

NARRATIVE: CASE EVENT DATE: 20200727
